FAERS Safety Report 17201528 (Version 1)
Quarter: 2019Q4

REPORT INFORMATION
  Report Type: Spontaneous
  Country: US (occurrence: US)
  Receive Date: 20191221
  Receipt Date: 20191221
  Transmission Date: 20200122
  Serious: Yes (Other)
  Sender: FDA-Public Use
  Company Number: None

PATIENT
  Age: 36 Year
  Sex: Female
  Weight: 76.5 kg

DRUGS (1)
  1. I DREAM LITE [Suspect]
     Active Substance: HERBALS
     Indication: INSOMNIA
     Dosage: ?          QUANTITY:1 CAPSULE(S);?
     Route: 048
     Dates: start: 20191220, end: 20191221

REACTIONS (2)
  - Dizziness [None]
  - Taste disorder [None]

NARRATIVE: CASE EVENT DATE: 20191221
